FAERS Safety Report 26182003 (Version 1)
Quarter: 2025Q4

REPORT INFORMATION
  Report Type: Spontaneous
  Country: EU (occurrence: EU)
  Receive Date: 20251221
  Receipt Date: 20251221
  Transmission Date: 20260117
  Serious: Yes (Hospitalization, Other)
  Sender: MYLAN
  Company Number: EU-TEVA-VS-3398737

PATIENT
  Age: 47 Year
  Sex: Male

DRUGS (76)
  1. CLOZAPINE [Suspect]
     Active Substance: CLOZAPINE
     Indication: Product used for unknown indication
     Dosage: 250 MILLIGRAM, QD (100 MG 1?0?1?)
     Dates: start: 202309
  2. CLOZAPINE [Suspect]
     Active Substance: CLOZAPINE
     Dosage: 250 MILLIGRAM, QD (100 MG 1?0?1?)
     Route: 065
     Dates: start: 202309
  3. CLOZAPINE [Suspect]
     Active Substance: CLOZAPINE
     Dosage: 250 MILLIGRAM, QD (100 MG 1?0?1?)
     Route: 065
     Dates: start: 202309
  4. CLOZAPINE [Suspect]
     Active Substance: CLOZAPINE
     Dosage: 250 MILLIGRAM, QD (100 MG 1?0?1?)
     Dates: start: 202309
  5. CLOZAPINE [Suspect]
     Active Substance: CLOZAPINE
     Dosage: 300 MILLIGRAM, QD
     Dates: start: 2024
  6. CLOZAPINE [Suspect]
     Active Substance: CLOZAPINE
     Dosage: 300 MILLIGRAM, QD
     Route: 065
     Dates: start: 2024
  7. CLOZAPINE [Suspect]
     Active Substance: CLOZAPINE
     Dosage: 300 MILLIGRAM, QD
     Dates: start: 2024
  8. CLOZAPINE [Suspect]
     Active Substance: CLOZAPINE
     Dosage: 300 MILLIGRAM, QD
     Route: 065
     Dates: start: 2024
  9. CLOZAPINE [Suspect]
     Active Substance: CLOZAPINE
     Dosage: 450 MILLIGRAM, QD
     Route: 065
     Dates: start: 2024
  10. CLOZAPINE [Suspect]
     Active Substance: CLOZAPINE
     Dosage: 450 MILLIGRAM, QD
     Route: 065
     Dates: start: 2024
  11. CLOZAPINE [Suspect]
     Active Substance: CLOZAPINE
     Dosage: 450 MILLIGRAM, QD
     Dates: start: 2024
  12. CLOZAPINE [Suspect]
     Active Substance: CLOZAPINE
     Dosage: 450 MILLIGRAM, QD
     Dates: start: 2024
  13. RISPERIDONE [Suspect]
     Active Substance: RISPERIDONE
     Indication: Product used for unknown indication
     Dosage: UNK
  14. RISPERIDONE [Suspect]
     Active Substance: RISPERIDONE
     Dosage: UNK
     Route: 065
  15. RISPERIDONE [Suspect]
     Active Substance: RISPERIDONE
     Dosage: UNK
     Route: 065
  16. RISPERIDONE [Suspect]
     Active Substance: RISPERIDONE
     Dosage: UNK
  17. OLANZAPINE [Suspect]
     Active Substance: OLANZAPINE
     Indication: Product used for unknown indication
     Dosage: 15 MILLIGRAM, QD (15 MG 0?0?1)
     Route: 065
     Dates: start: 202309
  18. OLANZAPINE [Suspect]
     Active Substance: OLANZAPINE
     Dosage: 15 MILLIGRAM, QD (15 MG 0?0?1)
     Dates: start: 202309
  19. OLANZAPINE [Suspect]
     Active Substance: OLANZAPINE
     Dosage: 15 MILLIGRAM, QD (15 MG 0?0?1)
     Dates: start: 202309
  20. OLANZAPINE [Suspect]
     Active Substance: OLANZAPINE
     Dosage: 15 MILLIGRAM, QD (15 MG 0?0?1)
     Route: 065
     Dates: start: 202309
  21. OLANZAPINE [Suspect]
     Active Substance: OLANZAPINE
     Dosage: 10 MILLIGRAM, QD
     Route: 065
     Dates: start: 2024
  22. OLANZAPINE [Suspect]
     Active Substance: OLANZAPINE
     Dosage: 10 MILLIGRAM, QD
     Dates: start: 2024
  23. OLANZAPINE [Suspect]
     Active Substance: OLANZAPINE
     Dosage: 10 MILLIGRAM, QD
     Dates: start: 2024
  24. OLANZAPINE [Suspect]
     Active Substance: OLANZAPINE
     Dosage: 10 MILLIGRAM, QD
     Route: 065
     Dates: start: 2024
  25. CITALOPRAM [Suspect]
     Active Substance: CITALOPRAM
     Indication: Product used for unknown indication
     Dosage: 20 MILLIGRAM, QD (20 MG 1?0?0)
     Dates: start: 202309
  26. CITALOPRAM [Suspect]
     Active Substance: CITALOPRAM
     Dosage: 20 MILLIGRAM, QD (20 MG 1?0?0)
     Route: 065
     Dates: start: 202309
  27. CITALOPRAM [Suspect]
     Active Substance: CITALOPRAM
     Dosage: 20 MILLIGRAM, QD (20 MG 1?0?0)
     Route: 065
     Dates: start: 202309
  28. CITALOPRAM [Suspect]
     Active Substance: CITALOPRAM
     Dosage: 20 MILLIGRAM, QD (20 MG 1?0?0)
     Dates: start: 202309
  29. CARIPRAZINE [Suspect]
     Active Substance: CARIPRAZINE
     Indication: Product used for unknown indication
     Dosage: UNK
  30. CARIPRAZINE [Suspect]
     Active Substance: CARIPRAZINE
     Dosage: UNK
     Route: 065
  31. CARIPRAZINE [Suspect]
     Active Substance: CARIPRAZINE
     Dosage: UNK
     Route: 065
  32. CARIPRAZINE [Suspect]
     Active Substance: CARIPRAZINE
     Dosage: UNK
  33. BIPERIDEN [Suspect]
     Active Substance: BIPERIDEN
     Indication: Product used for unknown indication
     Dosage: 2 MILLIGRAM, QD (2 MG 1?0?0)
     Dates: start: 202309, end: 2024
  34. BIPERIDEN [Suspect]
     Active Substance: BIPERIDEN
     Dosage: 2 MILLIGRAM, QD (2 MG 1?0?0)
     Route: 065
     Dates: start: 202309, end: 2024
  35. BIPERIDEN [Suspect]
     Active Substance: BIPERIDEN
     Dosage: 2 MILLIGRAM, QD (2 MG 1?0?0)
     Route: 065
     Dates: start: 202309, end: 2024
  36. BIPERIDEN [Suspect]
     Active Substance: BIPERIDEN
     Dosage: 2 MILLIGRAM, QD (2 MG 1?0?0)
     Dates: start: 202309, end: 2024
  37. ROSUVASTATIN CALCIUM [Concomitant]
     Active Substance: ROSUVASTATIN CALCIUM
     Indication: Product used for unknown indication
     Dosage: UNK
  38. ROSUVASTATIN CALCIUM [Concomitant]
     Active Substance: ROSUVASTATIN CALCIUM
     Dosage: UNK
     Route: 065
  39. ROSUVASTATIN CALCIUM [Concomitant]
     Active Substance: ROSUVASTATIN CALCIUM
     Dosage: UNK
     Route: 065
  40. ROSUVASTATIN CALCIUM [Concomitant]
     Active Substance: ROSUVASTATIN CALCIUM
     Dosage: UNK
  41. Prenessa neo [Concomitant]
     Indication: Product used for unknown indication
     Dosage: UNK
  42. Prenessa neo [Concomitant]
     Dosage: UNK
     Route: 065
  43. Prenessa neo [Concomitant]
     Dosage: UNK
     Route: 065
  44. Prenessa neo [Concomitant]
     Dosage: UNK
  45. Betamed [Concomitant]
     Indication: Product used for unknown indication
     Dosage: UNK
  46. Betamed [Concomitant]
     Dosage: UNK
     Route: 065
  47. Betamed [Concomitant]
     Dosage: UNK
     Route: 065
  48. Betamed [Concomitant]
     Dosage: UNK
  49. CETIRIZINE HYDROCHLORIDE [Concomitant]
     Active Substance: CETIRIZINE HYDROCHLORIDE
     Indication: Product used for unknown indication
     Dosage: UNK
  50. CETIRIZINE HYDROCHLORIDE [Concomitant]
     Active Substance: CETIRIZINE HYDROCHLORIDE
     Dosage: UNK
     Route: 065
  51. CETIRIZINE HYDROCHLORIDE [Concomitant]
     Active Substance: CETIRIZINE HYDROCHLORIDE
     Dosage: UNK
     Route: 065
  52. CETIRIZINE HYDROCHLORIDE [Concomitant]
     Active Substance: CETIRIZINE HYDROCHLORIDE
     Dosage: UNK
  53. FENOTEROL HYDROBROMIDE\IPRATROPIUM BROMIDE [Concomitant]
     Active Substance: FENOTEROL HYDROBROMIDE\IPRATROPIUM BROMIDE
     Indication: Product used for unknown indication
     Dosage: INH
  54. FENOTEROL HYDROBROMIDE\IPRATROPIUM BROMIDE [Concomitant]
     Active Substance: FENOTEROL HYDROBROMIDE\IPRATROPIUM BROMIDE
     Dosage: INH
     Route: 065
  55. FENOTEROL HYDROBROMIDE\IPRATROPIUM BROMIDE [Concomitant]
     Active Substance: FENOTEROL HYDROBROMIDE\IPRATROPIUM BROMIDE
     Dosage: INH
     Route: 065
  56. FENOTEROL HYDROBROMIDE\IPRATROPIUM BROMIDE [Concomitant]
     Active Substance: FENOTEROL HYDROBROMIDE\IPRATROPIUM BROMIDE
     Dosage: INH
  57. Euphyllin [Concomitant]
     Indication: Product used for unknown indication
     Dosage: UNK
  58. Euphyllin [Concomitant]
     Dosage: UNK
     Route: 065
  59. Euphyllin [Concomitant]
     Dosage: UNK
     Route: 065
  60. Euphyllin [Concomitant]
     Dosage: UNK
  61. ASTHMEX [Concomitant]
     Indication: Product used for unknown indication
     Dosage: INH
  62. ASTHMEX [Concomitant]
     Dosage: INH
     Route: 065
  63. ASTHMEX [Concomitant]
     Dosage: INH
     Route: 065
  64. ASTHMEX [Concomitant]
     Dosage: INH
  65. MONKASTA [Concomitant]
     Indication: Product used for unknown indication
     Dosage: UNK
  66. MONKASTA [Concomitant]
     Dosage: UNK
     Route: 065
  67. MONKASTA [Concomitant]
     Dosage: UNK
     Route: 065
  68. MONKASTA [Concomitant]
     Dosage: UNK
  69. METFORMIN HYDROCHLORIDE [Concomitant]
     Active Substance: METFORMIN HYDROCHLORIDE
     Indication: Product used for unknown indication
     Dosage: UNK
  70. METFORMIN HYDROCHLORIDE [Concomitant]
     Active Substance: METFORMIN HYDROCHLORIDE
     Dosage: UNK
     Route: 065
  71. METFORMIN HYDROCHLORIDE [Concomitant]
     Active Substance: METFORMIN HYDROCHLORIDE
     Dosage: UNK
     Route: 065
  72. METFORMIN HYDROCHLORIDE [Concomitant]
     Active Substance: METFORMIN HYDROCHLORIDE
     Dosage: UNK
  73. ZALDIAR [Concomitant]
     Active Substance: ACETAMINOPHEN\TRAMADOL HYDROCHLORIDE
     Indication: Product used for unknown indication
     Dosage: UNK
  74. ZALDIAR [Concomitant]
     Active Substance: ACETAMINOPHEN\TRAMADOL HYDROCHLORIDE
     Dosage: UNK
     Route: 065
  75. ZALDIAR [Concomitant]
     Active Substance: ACETAMINOPHEN\TRAMADOL HYDROCHLORIDE
     Dosage: UNK
     Route: 065
  76. ZALDIAR [Concomitant]
     Active Substance: ACETAMINOPHEN\TRAMADOL HYDROCHLORIDE
     Dosage: UNK

REACTIONS (10)
  - Persecutory delusion [Unknown]
  - Hallucination, auditory [Unknown]
  - Pseudohallucination [Unknown]
  - Lipid metabolism disorder [Not Recovered/Not Resolved]
  - Fatigue [Not Recovered/Not Resolved]
  - Disorganised speech [Unknown]
  - Poor quality sleep [Unknown]
  - Obsessive-compulsive disorder [Not Recovered/Not Resolved]
  - Insomnia [Unknown]
  - Therapeutic product effect incomplete [Unknown]
